FAERS Safety Report 4372940-3 (Version None)
Quarter: 2004Q2

REPORT INFORMATION
  Report Type: 
  Country: None (occurrence: None)
  Receive Date: 20040603
  Receipt Date: 20040521
  Transmission Date: 20050107
  Serious: Yes (Hospitalization, Other)
  Sender: FDA-Public Use
  Company Number: 2003161366US

PATIENT
  Age: 81 Year
  Sex: Female
  Weight: 63.5 kg

DRUGS (6)
  1. BEXTRA [Suspect]
     Indication: ARTHRITIS
     Dosage: 20 MG, QD, ORAL
     Route: 048
     Dates: start: 20020718, end: 20020726
  2. PREDNISONE [Concomitant]
  3. VISTARIL [Concomitant]
  4. ZANTAC [Concomitant]
  5. ZYRTEC [Concomitant]
  6. DARVOCET-N 100 [Concomitant]

REACTIONS (16)
  - AZOTAEMIA [None]
  - BACK PAIN [None]
  - DERMATITIS BULLOUS [None]
  - DERMATITIS EXFOLIATIVE [None]
  - FATIGUE [None]
  - FLAT FEET [None]
  - GAIT DISTURBANCE [None]
  - PAIN IN EXTREMITY [None]
  - PYREXIA [None]
  - RASH MACULO-PAPULAR [None]
  - SEPSIS [None]
  - STAPHYLOCOCCAL BACTERAEMIA [None]
  - TENDERNESS [None]
  - TENDON INJURY [None]
  - URINARY TRACT INFECTION [None]
  - WEIGHT DECREASED [None]
